FAERS Safety Report 11568989 (Version 1)
Quarter: 2015Q3

REPORT INFORMATION
  Report Type: Spontaneous
  Country: US (occurrence: None)
  Receive Date: 20150928
  Receipt Date: 20150928
  Transmission Date: 20151125
  Serious: No
  Sender: FDA-Public Use
  Company Number: None

PATIENT
  Sex: Female

DRUGS (1)
  1. FORTEO [Suspect]
     Active Substance: TERIPARATIDE
     Indication: OSTEOPOROSIS
     Dosage: 250 MCG/ML
     Route: 058
     Dates: start: 20150812, end: 20150917

REACTIONS (3)
  - Arrhythmia [None]
  - Cardiac murmur [None]
  - Condition aggravated [None]

NARRATIVE: CASE EVENT DATE: 20150923
